FAERS Safety Report 6492893-1 (Version None)
Quarter: 2009Q4

REPORT INFORMATION
  Report Type: 
  Country: None (occurrence: None)
  Receive Date: 20091214
  Receipt Date: 20091202
  Transmission Date: 20100525
  Serious: Yes (Other)
  Sender: FDA-Public Use
  Company Number: PHEH2009US17090

PATIENT
  Sex: Female

DRUGS (2)
  1. TEKTURNA [Suspect]
     Dosage: 150 MG, UNK
  2. ROBITUSSIN ^ROBINS^ [Suspect]

REACTIONS (7)
  - CONSTIPATION [None]
  - DRUG HYPERSENSITIVITY [None]
  - DYSPNOEA [None]
  - ERYTHEMA [None]
  - FEELING HOT [None]
  - HYPERTENSION [None]
  - SHOCK [None]
